FAERS Safety Report 9522022 (Version 1)
Quarter: 2013Q1

REPORT INFORMATION
  Report Type: Spontaneous
  Country: US (occurrence: None)
  Receive Date: 20130305
  Receipt Date: 20130305
  Transmission Date: 20140127
  Serious: Yes (Other)
  Sender: FDA-Public Use
  Company Number: 163-21880-12081500

PATIENT
  Age: 60 Year
  Sex: Female
  Weight: 62.1 kg

DRUGS (11)
  1. REVLIMID (LENALIDOMIDE) (25 MILLIGRAM, CAPSULES) [Suspect]
     Indication: PLASMA CELL MYELOMA
     Dosage: 21 IN 28 D
     Route: 048
     Dates: start: 20120721
  2. ASPIRIN [Concomitant]
  3. ZOFRAN [Concomitant]
  4. OXYCODONE [Concomitant]
  5. ESTRACE [Concomitant]
  6. DOCUSATE [Concomitant]
  7. PROGESTERONE [Concomitant]
  8. VITAMIN D [Concomitant]
  9. LEVOXYL [Concomitant]
  10. DEXAMETHASONE [Concomitant]
  11. FLAXSEED OIL [Concomitant]

REACTIONS (1)
  - Pruritus [None]
